FAERS Safety Report 13820812 (Version 1)
Quarter: 2017Q3

REPORT INFORMATION
  Report Type: Spontaneous
  Country: BR (occurrence: BR)
  Receive Date: 20170801
  Receipt Date: 20170801
  Transmission Date: 20171127
  Serious: Yes (Hospitalization, Disabling, Other)
  Sender: FDA-Public Use
  Company Number: BR-ABBVIE-17P-020-2053322-00

PATIENT
  Age: 51 Year
  Sex: Male
  Weight: 44 kg

DRUGS (1)
  1. KALETRA [Suspect]
     Active Substance: LOPINAVIR\RITONAVIR
     Indication: HIV INFECTION
     Route: 048

REACTIONS (19)
  - Memory impairment [Unknown]
  - Malaise [Unknown]
  - Cough [Unknown]
  - Headache [Not Recovered/Not Resolved]
  - Weight decreased [Not Recovered/Not Resolved]
  - Hypophagia [Unknown]
  - Gallbladder disorder [Unknown]
  - Cerebrovascular accident [Unknown]
  - Anaemia [Not Recovered/Not Resolved]
  - Lipoma [Unknown]
  - Choking [Unknown]
  - Cerebrovascular accident [Unknown]
  - Cerebrovascular disorder [Unknown]
  - Vomiting [Not Recovered/Not Resolved]
  - Dehydration [Not Recovered/Not Resolved]
  - Dysphagia [Not Recovered/Not Resolved]
  - Oropharyngeal pain [Not Recovered/Not Resolved]
  - Catarrh [Recovering/Resolving]
  - Pain [Unknown]

NARRATIVE: CASE EVENT DATE: 20161125
